FAERS Safety Report 7584815-7 (Version None)
Quarter: 2011Q2

REPORT INFORMATION
  Report Type: 
  Country: None (occurrence: None)
  Receive Date: 20110630
  Receipt Date: 20110623
  Transmission Date: 20111010
  Serious: Yes (Other)
  Sender: FDA-Public Use
  Company Number: PHHY2011US56066

PATIENT
  Sex: Female

DRUGS (6)
  1. VITAMIN B-12 [Concomitant]
  2. SANDOSTATIN LAR [Suspect]
     Dosage: 30 MG, QMO
  3. PEPCID [Concomitant]
  4. VITAMIN D [Concomitant]
  5. FOLIC ACID [Concomitant]
  6. COLESTIPOL HYDROCHLORIDE [Concomitant]

REACTIONS (1)
  - NEOPLASM [None]
